FAERS Safety Report 24903188 (Version 1)
Quarter: 2025Q1

REPORT INFORMATION
  Report Type: Report from Study
  Country: US (occurrence: US)
  Receive Date: 20250130
  Receipt Date: 20250130
  Transmission Date: 20250409
  Serious: Yes (Other)
  Sender: ROCHE
  Company Number: US-ROCHE-10000189414

PATIENT
  Age: 81 Year
  Sex: Female

DRUGS (3)
  1. VABYSMO [Suspect]
     Active Substance: FARICIMAB-SVOA
     Indication: Retinal vein occlusion
     Dosage: INJECT 6MG VIA INTRAVITREAL ADMINISTRATION INTO THE AFFECTED EYE(S) ONCE EVERY 4 WEEK(S)
     Route: 050
  2. VABYSMO [Suspect]
     Active Substance: FARICIMAB-SVOA
     Indication: Macular oedema
  3. VABYSMO [Suspect]
     Active Substance: FARICIMAB-SVOA
     Indication: Retinal disorder

REACTIONS (1)
  - Blindness [Unknown]
